FAERS Safety Report 15155711 (Version 2)
Quarter: 2018Q3

REPORT INFORMATION
  Report Type: Spontaneous
  Country: BG (occurrence: BG)
  Receive Date: 20180717
  Receipt Date: 20180803
  Transmission Date: 20181010
  Serious: Yes (Other)
  Sender: FDA-Public Use
  Company Number: BG-MYLANLABS-2018M1053102

PATIENT
  Age: 67 Year
  Sex: Male

DRUGS (6)
  1. DOCETAXEL. [Suspect]
     Active Substance: DOCETAXEL
     Indication: PROSTATE CANCER
     Dosage: UNK, IT STARTS AFTER A NEW TUMOR MARKER RISES
     Route: 042
  2. DENOSUMAB [Suspect]
     Active Substance: DENOSUMAB
     Indication: PROSTATE CANCER
     Dosage: USED AS INITIAL TREATMENT
     Route: 042
  3. BICALUTAMIDE. [Suspect]
     Active Substance: BICALUTAMIDE
     Indication: PROSTATE CANCER
     Dosage: USED AS INITIAL TREATMENT
  4. MITOXANTRONE [Suspect]
     Active Substance: MITOXANTRONE HYDROCHLORIDE
     Indication: PROSTATE CANCER
     Dosage: UNK
     Route: 042
  5. ENZALUTAMIDE [Suspect]
     Active Substance: ENZALUTAMIDE
     Indication: PROSTATE CANCER
     Dosage: 160 MG, QD, 160 MILLIGRAM DAILY;
     Route: 042
     Dates: start: 2015
  6. RADIUM [Suspect]
     Active Substance: RADIUM
     Indication: PROSTATE CANCER
     Dosage: A TOTAL OF 35.2 MBQ (55 KBQ / KG) AND AN AVERAGE OF 8.8 MBQ OF APPLICATION
     Route: 042
     Dates: start: 20170425, end: 20170719

REACTIONS (7)
  - Thrombocytopenia [Recovered/Resolved]
  - Anaemia [Recovered/Resolved]
  - Drug ineffective [Unknown]
  - Disease recurrence [Unknown]
  - Disease progression [Unknown]
  - Prostate cancer recurrent [Unknown]
  - Prostate cancer [Unknown]
